FAERS Safety Report 9518825 (Version 2)
Quarter: 2013Q4

REPORT INFORMATION
  Report Type: Spontaneous
  Country: TW (occurrence: TW)
  Receive Date: 20130912
  Receipt Date: 20131017
  Transmission Date: 20140711
  Serious: Yes (Hospitalization)
  Sender: FDA-Public Use
  Company Number: TW-AMGEN-TWNSP2013064075

PATIENT
  Age: 59 Year
  Sex: Female

DRUGS (7)
  1. ENBREL [Suspect]
     Indication: RHEUMATOID ARTHRITIS
     Dosage: 25 MG, 2X/WEEK
     Route: 058
     Dates: start: 20091027, end: 20130820
  2. M.T.X [Concomitant]
     Dosage: 15 MG, DAILY
     Route: 048
     Dates: start: 20130402, end: 20130907
  3. STILNOX [Concomitant]
     Dosage: 5 MG, DAILY
     Route: 048
     Dates: start: 20130402, end: 20130907
  4. PREDNISOLONE [Concomitant]
     Dosage: 2.5 MG, DAILY
     Route: 048
     Dates: start: 20130402, end: 20130907
  5. CETY [Concomitant]
     Dosage: 10 MG, DAILY
     Route: 048
     Dates: start: 20130402, end: 20130907
  6. FOLIC ACID [Concomitant]
     Dosage: 5 MG, DAILY
     Route: 048
     Dates: start: 20130402, end: 20130907
  7. CELECOXIB [Concomitant]
     Dosage: 200 MG, CAP, 400 MG DAILY
     Route: 048
     Dates: start: 20130402, end: 20130907

REACTIONS (3)
  - Atypical mycobacterial infection [Recovering/Resolving]
  - Mycobacterial infection [Recovering/Resolving]
  - Skin infection [Recovering/Resolving]
